FAERS Safety Report 6793383-9 (Version None)
Quarter: 2010Q2

REPORT INFORMATION
  Report Type: 
  Country: None (occurrence: None)
  Receive Date: 20100624
  Receipt Date: 20100208
  Transmission Date: 20101027
  Serious: Yes (Death, Other)
  Sender: FDA-Public Use
  Company Number: US-MYLANLABS-2010S1000980

PATIENT
  Age: 14 Year
  Sex: Male
  Weight: 75.75 kg

DRUGS (2)
  1. CLOZAPINE [Suspect]
     Indication: PSYCHOTIC DISORDER
     Route: 048
  2. ATIVAN [Concomitant]
     Dosage: BID PRN

REACTIONS (1)
  - ASPIRATION [None]
